FAERS Safety Report 9118605 (Version 3)
Quarter: 2013Q2

REPORT INFORMATION
  Report Type: Spontaneous
  Country: US (occurrence: US)
  Receive Date: 20130226
  Receipt Date: 20130501
  Transmission Date: 20140414
  Serious: No
  Sender: FDA-Public Use
  Company Number: US-VERTEX PHARMACEUTICALS INC.-2013-002509

PATIENT
  Age: 63 Year
  Sex: Male
  Weight: 82 kg

DRUGS (6)
  1. INCIVEK [Suspect]
     Indication: HEPATITIS C
     Dosage: 750 MG, TID
     Route: 048
     Dates: start: 20130216
  2. RIBAVIRIN [Suspect]
     Indication: HEPATITIS C
     Dosage: 400 MG AM, 600 MG PM
     Route: 048
     Dates: start: 20130216
  3. PEGASYS [Suspect]
     Indication: HEPATITIS C
     Dosage: 180 ?G, QW
     Route: 058
     Dates: start: 20130216
  4. ASA [Concomitant]
     Dosage: 81 MG, QD
     Route: 048
  5. ATACAND [Concomitant]
     Indication: HYPERTENSION
     Dosage: 32 MG, QD
     Route: 048
  6. NORVASC [Concomitant]
     Indication: HYPERTENSION
     Dosage: 10 MG, QD
     Route: 048

REACTIONS (12)
  - Blood glucose increased [Recovered/Resolved]
  - Influenza like illness [Not Recovered/Not Resolved]
  - Tremor [Unknown]
  - Back pain [Recovered/Resolved]
  - Pain [Unknown]
  - Chills [Recovered/Resolved]
  - Dry mouth [Recovered/Resolved]
  - Lip dry [Recovered/Resolved]
  - Lethargy [Recovered/Resolved]
  - Asthenia [Not Recovered/Not Resolved]
  - Rash pruritic [Recovered/Resolved]
  - Skin exfoliation [Recovered/Resolved]
